FAERS Safety Report 7526867-6 (Version None)
Quarter: 2011Q2

REPORT INFORMATION
  Report Type: 
  Country: None (occurrence: None)
  Receive Date: 20110606
  Receipt Date: 20110602
  Transmission Date: 20111010
  Serious: Yes (Life-Threatening)
  Sender: FDA-Public Use
  Company Number: PHHY2010JP86217

PATIENT
  Sex: Male
  Weight: 64 kg

DRUGS (16)
  1. SORAFENIB TOSILATE [Concomitant]
     Dosage: 800 MG, UNK
     Route: 048
     Dates: start: 20100113, end: 20100814
  2. MAGMITT [Concomitant]
     Indication: PROPHYLAXIS
     Dosage: 990 MG, UNK
     Route: 048
  3. AFINITOR [Suspect]
     Dosage: 10 MG, QD
     Route: 048
     Dates: start: 20101013, end: 20101017
  4. INTERFERON ALFA [Concomitant]
     Dosage: UNK
     Dates: start: 20090416, end: 20091224
  5. OXYCONTIN [Concomitant]
     Indication: METASTATIC RENAL CELL CARCINOMA
     Dosage: 20 MG, UNK
     Route: 048
     Dates: end: 20101006
  6. PROCHLORPERAZINE [Concomitant]
     Indication: PROPHYLAXIS
     Dosage: 15 MG, UNK
     Route: 048
  7. NAUZELIN [Concomitant]
     Indication: PROPHYLAXIS
  8. SELBEX [Concomitant]
     Indication: PROPHYLAXIS
     Dosage: 150 MG, UNK
     Route: 048
  9. AFINITOR [Suspect]
     Indication: METASTATIC RENAL CELL CARCINOMA
     Dosage: 10 MG, QD
     Route: 048
     Dates: start: 20100930, end: 20101006
  10. SUNITINIB MALATE [Concomitant]
     Dosage: 25 MG, UNK
     Route: 048
     Dates: start: 20100818, end: 20100910
  11. NAUZELIN [Concomitant]
     Indication: METASTATIC RENAL CELL CARCINOMA
     Dosage: 30 MG, UNK
     Route: 048
     Dates: start: 20101001
  12. OXINORM [Concomitant]
     Indication: METASTATIC RENAL CELL CARCINOMA
     Dosage: UNK
     Route: 048
  13. DUROTEP JANSSEN [Concomitant]
     Indication: METASTATIC RENAL CELL CARCINOMA
     Dosage: UNK
     Route: 062
     Dates: start: 20101006
  14. LOXONIN [Concomitant]
     Indication: METASTATIC RENAL CELL CARCINOMA
     Dosage: 180 MG, UNK
     Route: 048
  15. LENDORMIN [Concomitant]
     Dosage: 0.25 MG, UNK
     Route: 048
  16. ADALAT CC [Concomitant]
     Route: 048

REACTIONS (2)
  - PARALYSIS [None]
  - CEREBRAL HAEMORRHAGE [None]
